FAERS Safety Report 12985740 (Version 1)
Quarter: 2016Q4

REPORT INFORMATION
  Report Type: Spontaneous
  Country: US (occurrence: US)
  Receive Date: 20161130
  Receipt Date: 20161130
  Transmission Date: 20170207
  Serious: Yes (Hospitalization, Other)
  Sender: FDA-Public Use
  Company Number: US-SHIRE-US201617683

PATIENT
  Age: 17 Year
  Sex: Male

DRUGS (3)
  1. PROZAC [Suspect]
     Active Substance: FLUOXETINE HYDROCHLORIDE
     Indication: DEPRESSIVE SYMPTOM
     Dosage: 20 MG, UNKNOWN
     Route: 065
     Dates: start: 2016
  2. VYVANSE [Suspect]
     Active Substance: LISDEXAMFETAMINE DIMESYLATE
     Indication: PRODUCT USED FOR UNKNOWN INDICATION
     Dosage: 50 MG, UNKNOWN
     Route: 048
     Dates: end: 2016
  3. VYVANSE [Suspect]
     Active Substance: LISDEXAMFETAMINE DIMESYLATE
     Dosage: 40 MG, UNKNOWN
     Route: 048
     Dates: start: 2016

REACTIONS (4)
  - Hypoaesthesia [Unknown]
  - Tremor [Unknown]
  - Anxiety [Unknown]
  - Depressive symptom [Unknown]
